FAERS Safety Report 5383727-7 (Version None)
Quarter: 2007Q3

REPORT INFORMATION
  Report Type: 
  Country: None (occurrence: None)
  Receive Date: 20070711
  Receipt Date: 20070705
  Transmission Date: 20080115
  Serious: Yes (Death, Other)
  Sender: FDA-Public Use
  Company Number: PHEH2006US12066

PATIENT
  Age: 55 Year
  Sex: Male

DRUGS (7)
  1. ZOMETA [Suspect]
     Indication: MULTIPLE MYELOMA
     Dosage: 4 MG MONTHLY
     Dates: start: 20030301, end: 20050601
  2. DEXAMETHASONE W/DOXORUBICIN/VINCRISTINE [Concomitant]
     Indication: MULTIPLE MYELOMA
  3. CYTOXAN [Concomitant]
  4. VELCADE [Concomitant]
  5. THALIDOMIDE [Concomitant]
  6. ALKERAN [Concomitant]
  7. DECADRON [Concomitant]

REACTIONS (17)
  - BIOPSY [None]
  - BONE DISORDER [None]
  - DENTAL OPERATION [None]
  - DENTAL TREATMENT [None]
  - GINGIVAL INFECTION [None]
  - IMPAIRED HEALING [None]
  - MALIGNANT NEOPLASM PROGRESSION [None]
  - NEUROPATHY [None]
  - ORAL DISCOMFORT [None]
  - ORAL DISORDER [None]
  - OSTEOMYELITIS [None]
  - PAIN [None]
  - PLASMACYTOMA [None]
  - STAPHYLOCOCCAL INFECTION [None]
  - STEM CELL TRANSPLANT [None]
  - TOOTH EXTRACTION [None]
  - X-RAY ABNORMAL [None]
